FAERS Safety Report 9984128 (Version 2)
Quarter: 2014Q1

REPORT INFORMATION
  Report Type: Report from Study
  Country: US (occurrence: US)
  Receive Date: 20140307
  Receipt Date: 20140307
  Transmission Date: 20141002
  Serious: No
  Sender: FDA-Public Use
  Company Number: US-ABBVIE-13P-163-1175912-00

PATIENT
  Age: 23 Year
  Sex: Female

DRUGS (6)
  1. HUMIRA [Suspect]
     Indication: CROHN^S DISEASE
     Dates: start: 20130928, end: 20131123
  2. HUMIRA [Suspect]
     Dates: start: 20131123
  3. CLOZARIL [Concomitant]
     Indication: BIPOLAR DISORDER
  4. LAMICTAL [Concomitant]
     Indication: BIPOLAR DISORDER
  5. ZYPREXA [Concomitant]
     Indication: BIPOLAR DISORDER
  6. DEPO PROVERA [Concomitant]
     Indication: CONTRACEPTION

REACTIONS (1)
  - Crohn^s disease [Not Recovered/Not Resolved]
